FAERS Safety Report 7795650-9 (Version None)
Quarter: 2011Q4

REPORT INFORMATION
  Report Type: 
  Country: None (occurrence: None)
  Receive Date: 20111004
  Receipt Date: 20110923
  Transmission Date: 20120403
  Serious: Yes (Hospitalization)
  Sender: FDA-Public Use
  Company Number: FR-GLAXOSMITHKLINE-B0734722A

PATIENT
  Sex: Male
  Weight: 61 kg

DRUGS (3)
  1. BEVACIZUMAB [Suspect]
     Indication: NEOPLASM
     Dosage: 7.5MGK EVERY TWO WEEKS
     Route: 065
     Dates: start: 20110629, end: 20110629
  2. PAZOPANIB [Suspect]
     Indication: NEOPLASM
     Dosage: 600MG PER DAY
     Route: 048
     Dates: start: 20110615, end: 20110713
  3. AMLODIPINE BESYLATE [Concomitant]
     Indication: HYPERTENSION
     Dosage: 5MG PER DAY
     Route: 048

REACTIONS (5)
  - THROMBOTIC MICROANGIOPATHY [None]
  - HYPERTENSION [None]
  - PROTEINURIA [None]
  - HAEMOLYSIS [None]
  - BLOOD CREATININE INCREASED [None]
